FAERS Safety Report 6964015-1 (Version None)
Quarter: 2010Q3

REPORT INFORMATION
  Report Type: 
  Country: None (occurrence: None)
  Receive Date: 20100902
  Receipt Date: 20100902
  Transmission Date: 20110219
  Serious: Yes (Other)
  Sender: FDA-Public Use
  Company Number: None

PATIENT
  Age: 60 Year
  Sex: Male

DRUGS (1)
  1. TESTOSTERONE CYPIONATE [Suspect]
     Indication: BLOOD TESTOSTERONE DECREASED
     Dosage: 200MG/ML ONCE MONTHLY IM
     Route: 030
     Dates: start: 20100801, end: 20100801

REACTIONS (2)
  - PARAESTHESIA [None]
  - PRODUCT QUALITY ISSUE [None]
